FAERS Safety Report 4801406-9 (Version None)
Quarter: 2005Q4

REPORT INFORMATION
  Report Type: 
  Country: None (occurrence: None)
  Receive Date: 20051018
  Receipt Date: 20051011
  Transmission Date: 20060501
  Serious: Yes (Hospitalization)
  Sender: FDA-Public Use
  Company Number: US-JNJFOC-20051002882

PATIENT
  Age: 43 Year
  Sex: Male

DRUGS (1)
  1. TOPAMAX [Suspect]
     Indication: MIGRAINE PROPHYLAXIS
     Dosage: 25 MG IN THE MORNING AND 50 MG AT NIGHT.
     Route: 048

REACTIONS (4)
  - FEELING OF DESPAIR [None]
  - PALPITATIONS [None]
  - TACHYCARDIA [None]
  - TACHYPNOEA [None]
